FAERS Safety Report 18310853 (Version 1)
Quarter: 2020Q3

REPORT INFORMATION
  Report Type: Spontaneous
  Country: QA (occurrence: QA)
  Receive Date: 20200925
  Receipt Date: 20200925
  Transmission Date: 20201103
  Serious: Yes (Other)
  Sender: FDA-Public Use
  Company Number: QA-ABBVIE-20K-132-3581219-00

PATIENT
  Age: 74 Year
  Sex: Male

DRUGS (7)
  1. INTERFERON ALFA 2A [Concomitant]
     Active Substance: INTERFERON ALFA-2A
     Indication: COVID-19
  2. RIBAVIRIN. [Concomitant]
     Active Substance: RIBAVIRIN
     Indication: COVID-19
  3. LOPINAVIR/RITONAVIR [Suspect]
     Active Substance: LOPINAVIR\RITONAVIR
     Indication: COVID-19
     Route: 048
  4. VORICONAZOLE. [Concomitant]
     Active Substance: VORICONAZOLE
     Indication: COVID-19
     Dosage: ON DAY 21
  5. AZITHROMYCIN ANHYDROUS. [Concomitant]
     Active Substance: AZITHROMYCIN ANHYDROUS
     Indication: COVID-19
  6. METHYLPREDNISOLONE. [Concomitant]
     Active Substance: METHYLPREDNISOLONE
     Indication: COVID-19
  7. HYDROXYCHLOROQUINE [Concomitant]
     Active Substance: HYDROXYCHLOROQUINE
     Indication: COVID-19

REACTIONS (3)
  - Respiratory failure [Not Recovered/Not Resolved]
  - Drug ineffective for unapproved indication [Unknown]
  - Off label use [Unknown]
